FAERS Safety Report 21051142 (Version 1)
Quarter: 2022Q3

REPORT INFORMATION
  Report Type: Spontaneous
  Country: US (occurrence: US)
  Receive Date: 20220707
  Receipt Date: 20220707
  Transmission Date: 20221027
  Serious: No
  Sender: FDA-Public Use
  Company Number: US-LEO Pharma-343796

PATIENT
  Age: 67 Year
  Sex: Female

DRUGS (2)
  1. CALCIPOTRIENE [Suspect]
     Active Substance: CALCIPOTRIENE
     Indication: Dermatitis atopic
     Dosage: DOSAGE : APPLYING TWICE A DAY
     Route: 003
     Dates: start: 20220627, end: 20220628
  2. CALCIPOTRIENE [Suspect]
     Active Substance: CALCIPOTRIENE
     Indication: Dermatitis atopic
     Dosage: DOSAGE : APPLYING TWICE A DAY
     Route: 003
     Dates: start: 20220627, end: 20220628

REACTIONS (4)
  - Product use in unapproved indication [Unknown]
  - Erythema [Unknown]
  - Pruritus [Unknown]
  - Application site pain [Unknown]

NARRATIVE: CASE EVENT DATE: 20220628
